FAERS Safety Report 4970739-8 (Version None)
Quarter: 2006Q2

REPORT INFORMATION
  Report Type: 
  Country: None (occurrence: None)
  Receive Date: 20060411
  Receipt Date: 20060411
  Transmission Date: 20061013
  Serious: Yes (Hospitalization)
  Sender: FDA-Public Use
  Company Number: None

PATIENT
  Age: 64 Year
  Sex: Male
  Weight: 78.9 kg

DRUGS (2)
  1. AMPICILLIN SODIUM/SULBACTAM SODIUM [Suspect]
     Indication: CELLULITIS
     Dosage: 6G, 1.5G Q6H, INTRAVEN
     Route: 042
     Dates: start: 20060110, end: 20060113
  2. VANCOMYCIN [Suspect]
     Indication: CELLULITIS
     Dosage: 2G, 1G Q12H, IV
     Route: 042
     Dates: start: 20060113, end: 20060123

REACTIONS (1)
  - RASH [None]
